FAERS Safety Report 8602763-8 (Version None)
Quarter: 2012Q3

REPORT INFORMATION
  Report Type: 
  Country: None (occurrence: None)
  Receive Date: 20120817
  Receipt Date: 20120808
  Transmission Date: 20120928
  Serious: Yes (Hospitalization)
  Sender: FDA-Public Use
  Company Number: GB-JNJFOC-20120806164

PATIENT
  Sex: Female

DRUGS (2)
  1. REMICADE [Suspect]
     Indication: CROHN'S DISEASE
     Route: 042
     Dates: start: 20120726
  2. REMICADE [Suspect]
     Dosage: RECEIVED INFLIXIMAB IN THE PAST
     Route: 042

REACTIONS (4)
  - URTICARIA [None]
  - JOINT SWELLING [None]
  - DYSPNOEA [None]
  - DYSPHAGIA [None]
